FAERS Safety Report 12068677 (Version 2)
Quarter: 2016Q2

REPORT INFORMATION
  Report Type: Spontaneous
  Country: US (occurrence: US)
  Receive Date: 20160211
  Receipt Date: 20160425
  Transmission Date: 20160815
  Serious: Yes (Hospitalization, Congenital Anomaly, Other)
  Sender: FDA-Public Use
  Company Number: US-APOTEX-2016AP006455

PATIENT

DRUGS (2)
  1. AMOXICILLIN                        /00249602/ [Concomitant]
     Active Substance: AMOXICILLIN
     Indication: INFECTION
     Route: 064
  2. PAXIL [Suspect]
     Active Substance: PAROXETINE HYDROCHLORIDE
     Indication: DEPRESSION
     Dosage: UNK
     Route: 064
     Dates: start: 199704, end: 1997

REACTIONS (4)
  - Infantile apnoea [Unknown]
  - Foetal exposure during pregnancy [Unknown]
  - Cyanosis neonatal [Unknown]
  - Congenital anomaly [Not Recovered/Not Resolved]
